FAERS Safety Report 22281666 (Version 2)
Quarter: 2024Q3

REPORT INFORMATION
  Report Type: Spontaneous
  Country: FR (occurrence: FR)
  Receive Date: 20230504
  Receipt Date: 20240725
  Transmission Date: 20241016
  Serious: Yes (Hospitalization)
  Sender: SANOFI AVENTIS
  Company Number: None

PATIENT
  Age: 94 Year
  Sex: Female

DRUGS (9)
  1. HYDROCHLOROTHIAZIDE\IRBESARTAN [Suspect]
     Active Substance: HYDROCHLOROTHIAZIDE\IRBESARTAN
     Indication: Hypertension
     Dosage: 1 DF, QD ;IN THE MORNING
     Route: 048
     Dates: start: 20111004, end: 20230314
  2. ELIQUIS [Concomitant]
     Active Substance: APIXABAN
  3. LORAZEPAM [Concomitant]
     Active Substance: LORAZEPAM
  4. FUROSEMIDE [Concomitant]
     Active Substance: FUROSEMIDE
     Dosage: UNK
  5. VENLAFAXINE HYDROCHLORIDE [Concomitant]
     Active Substance: VENLAFAXINE HYDROCHLORIDE
  6. LEVOTHYROXINE SODIUM [Concomitant]
     Active Substance: LEVOTHYROXINE SODIUM
  7. MEBEVERINE [MEBEVERINE HYDROCHLORIDE] [Concomitant]
  8. MEBEVERINE [MEBEVERINE EMBONATE] [Concomitant]
  9. ASTEMIZOLE [Concomitant]
     Active Substance: ASTEMIZOLE

REACTIONS (3)
  - Hypoglycaemia [Recovered/Resolved]
  - Malaise [Recovered/Resolved]
  - Malaise [Recovered/Resolved]

NARRATIVE: CASE EVENT DATE: 20230313
